FAERS Safety Report 7400267-1 (Version None)
Quarter: 2011Q2

REPORT INFORMATION
  Report Type: 
  Country: None (occurrence: None)
  Receive Date: 20110407
  Receipt Date: 20110330
  Transmission Date: 20111010
  Serious: Yes (Disabling)
  Sender: FDA-Public Use
  Company Number: FI-ELI_LILLY_AND_COMPANY-FI201104000589

PATIENT
  Age: 35 Year
  Sex: Female

DRUGS (3)
  1. CYMBALTA [Suspect]
     Dosage: 30 MG, QD
  2. LAMICTAL [Concomitant]
     Dosage: 100 MG, UNK
  3. THYROXIN [Concomitant]
     Dosage: 0.1 MG, UNK

REACTIONS (5)
  - DECREASED APPETITE [None]
  - DRUG WITHDRAWAL SYNDROME [None]
  - CIRCADIAN RHYTHM SLEEP DISORDER [None]
  - SLEEP PARALYSIS [None]
  - ABNORMAL DREAMS [None]
